FAERS Safety Report 13489174 (Version 2)
Quarter: 2017Q2

REPORT INFORMATION
  Report Type: Spontaneous
  Country: US (occurrence: US)
  Receive Date: 20170427
  Receipt Date: 20170517
  Transmission Date: 20170830
  Serious: Yes (Hospitalization, Other)
  Sender: FDA-Public Use
  Company Number: US-PFIZER INC-3154462

PATIENT
  Age: 64 Year
  Sex: Female

DRUGS (3)
  1. PACLITAXEL. [Suspect]
     Active Substance: PACLITAXEL
     Indication: BREAST CANCER STAGE III
     Dosage: 4 CYCLES (FOUR CYCLES)
  2. CYTOXAN [Concomitant]
     Active Substance: CYCLOPHOSPHAMIDE
     Indication: BREAST CANCER STAGE III
     Dosage: 4 CYCLES (FOUR CYCLES)
  3. ADRIAMYCIN [Concomitant]
     Active Substance: DOXORUBICIN HYDROCHLORIDE
     Indication: BREAST CANCER STAGE III
     Dosage: 4 CYCLES (FOUR CYCLES)

REACTIONS (2)
  - Cholangitis [Unknown]
  - Cholangitis sclerosing [Unknown]
